FAERS Safety Report 18655489 (Version 2)
Quarter: 2021Q1

REPORT INFORMATION
  Report Type: Spontaneous
  Country: US (occurrence: US)
  Receive Date: 20201223
  Receipt Date: 20210121
  Transmission Date: 20210419
  Serious: No
  Sender: FDA-Public Use
  Company Number: US-PFIZER INC-2019288142

PATIENT
  Age: 33 Year
  Sex: Male
  Weight: 99.77 kg

DRUGS (3)
  1. PREGNYL [Concomitant]
     Active Substance: CHORIOGONADOTROPIN ALFA
     Dosage: UNK
  2. GENOTROPIN [Suspect]
     Active Substance: SOMATROPIN
     Indication: BENIGN NEOPLASM OF ADRENAL GLAND
  3. GENOTROPIN [Suspect]
     Active Substance: SOMATROPIN
     Indication: HYPOPITUITARISM
     Dosage: 0.2 MG, DAILY (UNDER THE SKIN SEVEN DAYS PER WEEK)
     Route: 058

REACTIONS (2)
  - Device leakage [Unknown]
  - Injection site pain [Unknown]
